FAERS Safety Report 11401469 (Version 1)
Quarter: 2015Q3

REPORT INFORMATION
  Report Type: Spontaneous
  Country: US (occurrence: US)
  Receive Date: 20150820
  Receipt Date: 20150820
  Transmission Date: 20151125
  Serious: No
  Sender: FDA-Public Use
  Company Number: US-AMGEN-USASP2015083295

PATIENT
  Age: 44 Year
  Sex: Male

DRUGS (2)
  1. CYCLOSPORINE. [Concomitant]
     Active Substance: CYCLOSPORINE
     Dosage: UNK
  2. ENBREL [Suspect]
     Active Substance: ETANERCEPT
     Indication: PSORIASIS
     Dosage: 25 MG, 2 TIMES/WK
     Route: 065
     Dates: start: 2004

REACTIONS (4)
  - Drug ineffective [Unknown]
  - Injection site bruising [Unknown]
  - Psoriasis [Unknown]
  - Injection site haemorrhage [Unknown]
